FAERS Safety Report 10935407 (Version 2)
Quarter: 2015Q1

REPORT INFORMATION
  Report Type: Report from Study
  Country: US (occurrence: US)
  Receive Date: 20150320
  Receipt Date: 20150323
  Transmission Date: 20150721
  Serious: Yes (Hospitalization)
  Sender: FDA-Public Use
  Company Number: US-009507513-1503USA004046

PATIENT
  Age: 58 Year
  Sex: Male
  Weight: 80.6 kg

DRUGS (3)
  1. PEMBROLIZUMAB. [Suspect]
     Active Substance: PEMBROLIZUMAB
     Indication: DIFFUSE LARGE B-CELL LYMPHOMA
     Dosage: 200 MG, UNK
     Route: 042
     Dates: start: 20150226
  2. ATOVAQUONE. [Interacting]
     Active Substance: ATOVAQUONE
     Indication: PROPHYLAXIS
     Dosage: UNK
  3. PEMBROLIZUMAB. [Interacting]
     Active Substance: PEMBROLIZUMAB
     Indication: CHRONIC LYMPHOCYTIC LEUKAEMIA

REACTIONS (6)
  - Febrile neutropenia [Unknown]
  - Neutrophil count decreased [Unknown]
  - Headache [Unknown]
  - White blood cell count decreased [Unknown]
  - Rash [Recovering/Resolving]
  - Platelet count decreased [Unknown]

NARRATIVE: CASE EVENT DATE: 20150301
